FAERS Safety Report 5781272-8 (Version None)
Quarter: 2008Q2

REPORT INFORMATION
  Report Type: 
  Country: None (occurrence: None)
  Receive Date: 20080623
  Receipt Date: 20080613
  Transmission Date: 20081010
  Serious: Yes (Hospitalization)
  Sender: FDA-Public Use
  Company Number: GB-RANBAXY-2008RR-15980

PATIENT

DRUGS (2)
  1. ACETAMINOPHEN [Suspect]
     Dosage: 2.5 G, UNK
     Route: 048
  2. OLANZAPINE [Suspect]
     Dosage: 840 MG, UNK
     Route: 048

REACTIONS (2)
  - OVERDOSE [None]
  - SEROTONIN SYNDROME [None]
